FAERS Safety Report 17548676 (Version 1)
Quarter: 2020Q1

REPORT INFORMATION
  Report Type: Spontaneous
  Country: US (occurrence: US)
  Receive Date: 20200317
  Receipt Date: 20200317
  Transmission Date: 20200409
  Serious: No
  Sender: FDA-Public Use
  Company Number: US-ALLERGAN-1906940US

PATIENT
  Age: 76 Year
  Sex: Female
  Weight: 58.05 kg

DRUGS (10)
  1. NORCO [Suspect]
     Active Substance: ACETAMINOPHEN\HYDROCODONE BITARTRATE
     Indication: NECK PAIN
  2. AMITIZA [Concomitant]
     Active Substance: LUBIPROSTONE
     Dosage: 24 ?G, BID
     Route: 048
     Dates: start: 20171110
  3. MAXALT [Concomitant]
     Active Substance: RIZATRIPTAN BENZOATE
     Dosage: 10 MG, QD, AS NEEDED
     Route: 048
     Dates: start: 20171110
  4. NORCO [Suspect]
     Active Substance: ACETAMINOPHEN\HYDROCODONE BITARTRATE
     Indication: PAIN IN EXTREMITY
  5. LYRICA [Interacting]
     Active Substance: PREGABALIN
     Indication: PAIN IN EXTREMITY
  6. TOPAMAX [Concomitant]
     Active Substance: TOPIRAMATE
     Dosage: 25 MG, BID
     Route: 048
     Dates: start: 20171110
  7. LYRICA [Interacting]
     Active Substance: PREGABALIN
     Indication: NECK PAIN
     Dosage: 100 MG, BID
     Dates: start: 20170925
  8. LYRICA [Interacting]
     Active Substance: PREGABALIN
     Indication: BACK PAIN
     Dosage: 100 MG, BID
     Route: 048
     Dates: start: 20171110
  9. NORCO [Suspect]
     Active Substance: ACETAMINOPHEN\HYDROCODONE BITARTRATE
     Indication: BACK PAIN
     Dosage: 1 DF (10/325), Q8HR, AS NEEDED
     Route: 048
     Dates: start: 20171110
  10. BACLOFEN. [Concomitant]
     Active Substance: BACLOFEN
     Dosage: 10 MG, TID
     Route: 048
     Dates: start: 20170823

REACTIONS (1)
  - Therapeutic product effect incomplete [Unknown]
